FAERS Safety Report 7083993-6 (Version None)
Quarter: 2010Q4

REPORT INFORMATION
  Report Type: 
  Country: None (occurrence: None)
  Receive Date: 20101025
  Receipt Date: 20101007
  Transmission Date: 20110411
  Serious: Yes (Other)
  Sender: FDA-Public Use
  Company Number: DSA_44072_2010

PATIENT
  Age: 72 Year
  Sex: Male

DRUGS (2)
  1. CARDIZEM SR [Suspect]
     Indication: PRODUCT USED FOR UNKNOWN INDICATION
     Dosage: (120 MG BID ORAL)
     Route: 048
  2. AMILORIDE HCL AND HYDROCHLOROTHIAZIDE [Suspect]
     Dosage: (DF)

REACTIONS (3)
  - DRUG INTOLERANCE [None]
  - GASTRIC ULCER [None]
  - INCREASED UPPER AIRWAY SECRETION [None]
